FAERS Safety Report 9460957 (Version 2)
Quarter: 2013Q4

REPORT INFORMATION
  Report Type: Spontaneous
  Country: US (occurrence: US)
  Receive Date: 20130816
  Receipt Date: 20131114
  Transmission Date: 20140711
  Serious: No
  Sender: FDA-Public Use
  Company Number: US-BIOGENIDEC-2013BI075022

PATIENT
  Age: 52 Year
  Sex: Male

DRUGS (2)
  1. TYSABRI [Suspect]
     Indication: MULTIPLE SCLEROSIS
     Route: 042
     Dates: start: 20120518, end: 20130703
  2. TYSABRI [Suspect]
     Indication: MULTIPLE SCLEROSIS
     Route: 042
     Dates: start: 201207, end: 201309

REACTIONS (7)
  - Gait disturbance [Unknown]
  - Coordination abnormal [Unknown]
  - General symptom [Unknown]
  - Multiple sclerosis [Unknown]
  - Drug ineffective [Unknown]
  - Asthenia [Unknown]
  - Drug specific antibody present [Unknown]
